FAERS Safety Report 4964811-6 (Version None)
Quarter: 2006Q2

REPORT INFORMATION
  Report Type: 
  Country: None (occurrence: None)
  Receive Date: 20060403
  Receipt Date: 20060320
  Transmission Date: 20061013
  Serious: Yes (Hospitalization)
  Sender: FDA-Public Use
  Company Number: HQWYE418021MAR06

PATIENT
  Age: 56 Year
  Sex: Male

DRUGS (7)
  1. VENLAFAXINE HCL [Suspect]
     Indication: DEPRESSION
     Dosage: 75 MG 1X PER 1 DAY ORAL
     Route: 048
     Dates: start: 20050428, end: 20060315
  2. BROTIZOLAM (BROTIZOLAM) [Concomitant]
  3. METHYCOBAL (MECOBALAMIN) [Concomitant]
  4. AMARYL [Concomitant]
  5. ACTOS (PIOGLTIAZONE HYROCHLORIDE) [Concomitant]
  6. METFORMIN HCL [Concomitant]
  7. PRAVASTATIN [Concomitant]

REACTIONS (3)
  - FATIGUE [None]
  - PANIC REACTION [None]
  - SOCIAL AVOIDANT BEHAVIOUR [None]
